FAERS Safety Report 15619231 (Version 1)
Quarter: 2018Q4

REPORT INFORMATION
  Report Type: Spontaneous
  Country: US (occurrence: US)
  Receive Date: 20181114
  Receipt Date: 20181114
  Transmission Date: 20190205
  Serious: No
  Sender: FDA-Public Use
  Company Number: US-SA-2018SA176250

PATIENT
  Age: 67 Year
  Sex: Female

DRUGS (1)
  1. ACT ADVANCED CARE PLAQUE GUARD ANTIGINGIVITIS ANTIPLAQUE CLEAN MINT [Suspect]
     Active Substance: CETYLPYRIDINIUM CHLORIDE
     Dosage: UNK UNK, QD
     Dates: start: 201712, end: 201712

REACTIONS (1)
  - Oral discomfort [Recovered/Resolved]

NARRATIVE: CASE EVENT DATE: 201712
